FAERS Safety Report 5502189-X (Version None)
Quarter: 2007Q4

REPORT INFORMATION
  Report Type: 
  Country: None (occurrence: None)
  Receive Date: 20071030
  Receipt Date: 20071019
  Transmission Date: 20080405
  Serious: Yes (Death, Other)
  Sender: FDA-Public Use
  Company Number: HQWYE518528JUL04

PATIENT
  Sex: Female

DRUGS (2)
  1. PREMPRO [Suspect]
     Indication: HORMONE REPLACEMENT THERAPY
  2. PROVERA [Suspect]

REACTIONS (7)
  - METASTASES TO ABDOMINAL WALL [None]
  - METASTASES TO BLADDER [None]
  - METASTASES TO CENTRAL NERVOUS SYSTEM [None]
  - METASTASES TO LARGE INTESTINE [None]
  - METASTASES TO PERITONEUM [None]
  - OVARIAN CANCER METASTATIC [None]
  - THROMBOSIS [None]
